FAERS Safety Report 14256637 (Version 1)
Quarter: 2017Q4

REPORT INFORMATION
  Report Type: Spontaneous
  Country: CN (occurrence: CN)
  Receive Date: 20171206
  Receipt Date: 20171206
  Transmission Date: 20180321
  Serious: Yes (Other)
  Sender: FDA-Public Use
  Company Number: CN-PFIZER INC-2017520923

PATIENT
  Age: 97 Year
  Sex: Female

DRUGS (1)
  1. LIPITOR [Suspect]
     Active Substance: ATORVASTATIN CALCIUM
     Indication: ARTERIOSCLEROSIS
     Dosage: 20 MG, 1X/DAY
     Route: 048
     Dates: start: 20170901, end: 20171013

REACTIONS (4)
  - Myalgia [Unknown]
  - Blood creatine phosphokinase increased [Recovering/Resolving]
  - Mental disorder [Unknown]
  - Blood lactate dehydrogenase increased [Recovering/Resolving]

NARRATIVE: CASE EVENT DATE: 20171013
